FAERS Safety Report 8610778-9 (Version None)
Quarter: 2012Q3

REPORT INFORMATION
  Report Type: 
  Country: None (occurrence: None)
  Receive Date: 20120822
  Receipt Date: 20120815
  Transmission Date: 20120928
  Serious: Yes (Other)
  Sender: FDA-Public Use
  Company Number: DE-JNJFOC-20120804494

PATIENT
  Sex: Female
  Weight: 73 kg

DRUGS (4)
  1. FLECAINIDE ACETATE [Concomitant]
     Route: 065
  2. MINOXIDIL [Suspect]
     Indication: ALOPECIA
     Route: 061
     Dates: start: 20120705, end: 20120805
  3. MINOXIDIL [Suspect]
     Route: 061
  4. BISOPROLOL FUMARATE [Concomitant]
     Route: 065

REACTIONS (5)
  - FLUID RETENTION [None]
  - OEDEMA [None]
  - CARDIAC DISORDER [None]
  - HYPERTENSION [None]
  - ARRHYTHMIA [None]
